FAERS Safety Report 19938122 (Version 2)
Quarter: 2021Q4

REPORT INFORMATION
  Report Type: Report from Study
  Country: GB (occurrence: GB)
  Receive Date: 20211011
  Receipt Date: 20211217
  Transmission Date: 20220303
  Serious: Yes (Other)
  Sender: FDA-Public Use
  Company Number: GB-SAMSUNG BIOEPIS-SB-2021-15379

PATIENT
  Age: 38 Year
  Sex: Female

DRUGS (2)
  1. ETANERCEPT [Suspect]
     Active Substance: ETANERCEPT
     Indication: Ankylosing spondylitis
     Route: 058
     Dates: start: 20210607
  2. ADALIMUMAB [Suspect]
     Active Substance: ADALIMUMAB
     Indication: Product used for unknown indication
     Dosage: UNKNOWN
     Route: 065

REACTIONS (18)
  - COVID-19 [Not Recovered/Not Resolved]
  - Immunodeficiency [Unknown]
  - Lower respiratory tract infection [Unknown]
  - Injection site erythema [Unknown]
  - Injection site pruritus [Unknown]
  - Rash pruritic [Recovered/Resolved]
  - Injection site swelling [Unknown]
  - Pyrexia [Unknown]
  - Influenza [Unknown]
  - Pruritus [Unknown]
  - Erythema [Unknown]
  - Rash [Unknown]
  - Cough [Unknown]
  - Feeling abnormal [Unknown]
  - Feeling abnormal [Unknown]
  - Injection site bruising [Unknown]
  - Infection [Not Recovered/Not Resolved]
  - Drug ineffective [Unknown]

NARRATIVE: CASE EVENT DATE: 20210616
